FAERS Safety Report 19280172 (Version 3)
Quarter: 2022Q2

REPORT INFORMATION
  Report Type: Spontaneous
  Country: US (occurrence: US)
  Receive Date: 20210520
  Receipt Date: 20220413
  Transmission Date: 20220721
  Serious: No
  Sender: FDA-Public Use
  Company Number: US-PFIZER INC-2021294277

PATIENT
  Age: 66 Year
  Sex: Female
  Weight: 72.57 kg

DRUGS (3)
  1. IBRANCE [Suspect]
     Active Substance: PALBOCICLIB
     Indication: Breast cancer female
     Dosage: 100 MG, DAILY
     Route: 048
  2. IBRANCE [Suspect]
     Active Substance: PALBOCICLIB
     Dosage: 100 MG, CYCLIC (1 CAPSULE DAILY, 14 DAYS ON THEN 14 DAYS OFF/TWO WEEKS ON AND 2 WEEKS OFF)
     Route: 048
  3. IBRANCE [Suspect]
     Active Substance: PALBOCICLIB
     Dosage: 75 MG, CYCLIC, (3 WEEKS, THEN OFF ONE WEEK)

REACTIONS (6)
  - Product dose omission issue [Unknown]
  - Platelet count decreased [Unknown]
  - Malaise [Unknown]
  - Dyspepsia [Unknown]
  - Feeding disorder [Unknown]
  - Body height decreased [Unknown]
